FAERS Safety Report 4814039-5 (Version None)
Quarter: 2005Q4

REPORT INFORMATION
  Report Type: 
  Country: None (occurrence: None)
  Receive Date: 20051028
  Receipt Date: 20050614
  Transmission Date: 20060501
  Serious: No
  Sender: FDA-Public Use
  Company Number: US-GLAXOSMITHKLINE-A0562626A

PATIENT
  Age: 16 Year
  Sex: Female

DRUGS (9)
  1. SEREVENT [Suspect]
     Indication: DRUG USE FOR UNKNOWN INDICATION
     Dosage: 1PUFF TWICE PER DAY
     Route: 055
     Dates: start: 20050316
  2. INTAL [Concomitant]
     Dosage: 2PUFF TWICE PER DAY
     Route: 055
     Dates: start: 20050322
  3. SINGULAIR [Concomitant]
     Dosage: 1TAB AT NIGHT
     Route: 048
     Dates: start: 20050126
  4. PULMICORT [Concomitant]
     Dosage: 1PUFF TWICE PER DAY
     Route: 055
     Dates: start: 20041130
  5. ALBUTEROL [Concomitant]
     Dosage: 1PUFF AS REQUIRED
     Route: 055
     Dates: start: 20041116
  6. ADVAIR DISKUS 100/50 [Concomitant]
     Dosage: 1PUFF TWICE PER DAY
     Route: 055
     Dates: start: 20031116
  7. IMITREX [Concomitant]
     Dosage: 1TAB AS REQUIRED
     Route: 048
     Dates: start: 20031110
  8. ZELNORM [Concomitant]
     Dosage: 1TAB TWICE PER DAY
     Route: 048
     Dates: start: 20040909
  9. PROVENTIL [Concomitant]
     Dosage: 2PUFF AS REQUIRED
     Route: 055
     Dates: start: 20041012

REACTIONS (2)
  - DRUG INEFFECTIVE [None]
  - PHARMACEUTICAL PRODUCT COMPLAINT [None]
